FAERS Safety Report 7433916-2 (Version None)
Quarter: 2011Q2

REPORT INFORMATION
  Report Type: 
  Country: None (occurrence: None)
  Receive Date: 20110420
  Receipt Date: 20110420
  Transmission Date: 20111010
  Serious: Yes (Death)
  Sender: FDA-Public Use
  Company Number: None

PATIENT
  Age: 58 Year
  Sex: Male

DRUGS (2)
  1. REVLIMID [Suspect]
     Indication: AMYLOIDOSIS
     Dosage: REVLIMID 5 MG DAILY ORALLY
     Route: 048
     Dates: start: 20100201, end: 20100301
  2. SERTRALINE [Concomitant]

REACTIONS (5)
  - DISEASE PROGRESSION [None]
  - REFUSAL OF TREATMENT BY RELATIVE [None]
  - DIALYSIS [None]
  - AMYLOIDOSIS [None]
  - RENAL FAILURE [None]
